FAERS Safety Report 4563746-0 (Version None)
Quarter: 2005Q1

REPORT INFORMATION
  Report Type: 
  Country: None (occurrence: None)
  Receive Date: 20050128
  Receipt Date: 20050114
  Transmission Date: 20050727
  Serious: Yes (Other)
  Sender: FDA-Public Use
  Company Number: 200510101DE

PATIENT
  Age: 30 Year
  Sex: Male

DRUGS (2)
  1. AMARYL [Suspect]
     Route: 048
  2. ALCOHOL [Suspect]

REACTIONS (3)
  - ALCOHOL USE [None]
  - DEPRESSED LEVEL OF CONSCIOUSNESS [None]
  - PALLOR [None]
